FAERS Safety Report 4723049-8 (Version None)
Quarter: 2005Q3

REPORT INFORMATION
  Report Type: 
  Country: None (occurrence: None)
  Receive Date: 20050719
  Receipt Date: 20040719
  Transmission Date: 20060218
  Serious: Yes (Other)
  Sender: FDA-Public Use
  Company Number: 2004217237US

PATIENT
  Age: 73 Year
  Sex: Female
  Weight: 53.5 kg

DRUGS (4)
  1. CELEBREX [Suspect]
     Indication: ARTHRITIS
     Dosage: 200 MG, QD
     Dates: end: 20040530
  2. PROPANOLOL (PROPANOLOL) [Concomitant]
  3. GLUCOTROL XL [Concomitant]
  4. GLUCOPHAGE [Concomitant]

REACTIONS (5)
  - DYSURIA [None]
  - GROIN PAIN [None]
  - INTESTINAL FUNCTIONAL DISORDER [None]
  - LARGE INTESTINAL ULCER [None]
  - PSORIATIC ARTHROPATHY [None]
